FAERS Safety Report 4292575-0 (Version None)
Quarter: 2004Q1

REPORT INFORMATION
  Report Type: 
  Country: None (occurrence: None)
  Receive Date: 20040211
  Receipt Date: 20040211
  Transmission Date: 20041129
  Serious: Yes (Disabling)
  Sender: FDA-Public Use
  Company Number: None

PATIENT
  Age: 47 Year
  Sex: Female
  Weight: 61.2356 kg

DRUGS (1)
  1. ZICAM COLD PRODUCT [Suspect]
     Dosage: 2 SPRAY TWICE DAIL ENDOSINUSIAL
     Route: 006
     Dates: start: 20020315, end: 20020315

REACTIONS (7)
  - ANOSMIA [None]
  - DRUG INEFFECTIVE [None]
  - LACRIMATION INCREASED [None]
  - NASAL DISCOMFORT [None]
  - NASAL SEPTUM DEVIATION [None]
  - SINUS DISORDER [None]
  - SWELLING [None]
